FAERS Safety Report 7378098-0 (Version None)
Quarter: 2011Q1

REPORT INFORMATION
  Report Type: 
  Country: None (occurrence: None)
  Receive Date: 20110317
  Receipt Date: 20110311
  Transmission Date: 20110831
  Serious: Yes (Other)
  Sender: FDA-Public Use
  Company Number: DSA_45059_2011

PATIENT
  Age: 62 Year
  Sex: Female

DRUGS (25)
  1. PRILOSEC [Concomitant]
  2. VITAMIN D [Concomitant]
  3. C-VITAMIN [Concomitant]
  4. VASOTEC [Suspect]
     Indication: HYPERTENSION
     Dosage: (DF ORAL)
     Route: 048
  5. CHANTIX [Suspect]
     Indication: SMOKING CESSATION THERAPY
     Dosage: (0.5 MG QD ORAL), (1 MG BID ORAL)
     Route: 048
     Dates: start: 20070101, end: 20100101
  6. CHANTIX [Suspect]
     Indication: SMOKING CESSATION THERAPY
     Dosage: (0.5 MG QD ORAL), (1 MG BID ORAL)
     Route: 048
     Dates: start: 20090901
  7. CHANTIX [Suspect]
     Indication: SMOKING CESSATION THERAPY
     Dosage: (0.5 MG QD ORAL), (1 MG BID ORAL)
     Route: 048
     Dates: start: 20080101
  8. CHANTIX [Suspect]
     Indication: SMOKING CESSATION THERAPY
     Dosage: (0.5 MG QD ORAL), (1 MG BID ORAL)
     Route: 048
     Dates: start: 20080101
  9. CHANTIX [Suspect]
     Indication: SMOKING CESSATION THERAPY
     Dosage: (0.5 MG QD ORAL), (1 MG BID ORAL)
     Route: 048
     Dates: start: 20090601
  10. NOVOLOG [Suspect]
     Indication: DIABETES MELLITUS
     Dosage: (DF)
     Dates: end: 20090101
  11. LASIX [Concomitant]
  12. LANTUS [Concomitant]
  13. DITROPAN [Concomitant]
  14. CALCIUM CARBONATE W/VITAMIN D NOS [Concomitant]
  15. NEURONTIN [Concomitant]
  16. VITAMIN B6 [Concomitant]
  17. CELEBREX [Suspect]
     Indication: OSTEOARTHRITIS
     Dosage: (DF ORAL)
     Route: 048
  18. GLIPIZIDE [Suspect]
     Indication: DIABETES MELLITUS
     Dosage: (5 MG TID ORAL)
     Route: 048
     Dates: start: 20090101
  19. VALSARTAN [Suspect]
     Indication: HYPERTENSION
     Dosage: (DF ORAL)
     Route: 048
  20. LOPRESSOR [Concomitant]
  21. ASPIRIN [Concomitant]
  22. CELEXA [Concomitant]
  23. XANAX [Concomitant]
  24. NITROGLYCERIN [Concomitant]
  25. VITAMIN B NOS [Concomitant]

REACTIONS (15)
  - DECREASED APPETITE [None]
  - VOMITING [None]
  - PRURITUS [None]
  - BLOOD IRON DECREASED [None]
  - MUSCLE SPASMS [None]
  - DEPRESSION [None]
  - HYPERTENSION [None]
  - SOMNOLENCE [None]
  - DRY SKIN [None]
  - BLOOD GLUCOSE DECREASED [None]
  - TREMOR [None]
  - NAUSEA [None]
  - HYPERSENSITIVITY [None]
  - STRESS [None]
  - FRUSTRATION [None]
